FAERS Safety Report 5271859-3 (Version None)
Quarter: 2007Q1

REPORT INFORMATION
  Report Type: 
  Country: None (occurrence: None)
  Receive Date: 20070321
  Receipt Date: 20070125
  Transmission Date: 20070707
  Serious: Yes (Other)
  Sender: FDA-Public Use
  Company Number: US-PFIZER INC-2007020300

PATIENT

DRUGS (1)
  1. XALATAN [Suspect]

REACTIONS (1)
  - INTRAOCULAR PRESSURE INCREASED [None]
